FAERS Safety Report 12389929 (Version 1)
Quarter: 2016Q2

REPORT INFORMATION
  Report Type: Spontaneous
  Country: US (occurrence: US)
  Receive Date: 20160520
  Receipt Date: 20160520
  Transmission Date: 20160815
  Serious: No
  Sender: FDA-Public Use
  Company Number: US-LUNDBECK-DKLU2013045

PATIENT
  Sex: Male

DRUGS (3)
  1. TRILEPTAL [Concomitant]
     Active Substance: OXCARBAZEPINE
     Indication: PRODUCT USED FOR UNKNOWN INDICATION
     Route: 065
  2. ONFI [Suspect]
     Active Substance: CLOBAZAM
     Indication: CRANIOCEREBRAL INJURY
     Route: 065
     Dates: start: 20160404
  3. ONFI [Suspect]
     Active Substance: CLOBAZAM
     Indication: SEIZURE

REACTIONS (3)
  - Aggression [Unknown]
  - Abnormal behaviour [Unknown]
  - Anger [Unknown]
